FAERS Safety Report 8172209-5 (Version None)
Quarter: 2012Q1

REPORT INFORMATION
  Report Type: 
  Country: None (occurrence: None)
  Receive Date: 20120228
  Receipt Date: 20120202
  Transmission Date: 20120608
  Serious: Yes (Disabling, Other)
  Sender: FDA-Public Use
  Company Number: PHHY2009JP42919

PATIENT
  Sex: Female

DRUGS (8)
  1. TASIGNA [Suspect]
     Dosage: 400 MG,
     Route: 048
     Dates: start: 20090810, end: 20090812
  2. TASIGNA [Suspect]
     Indication: CHRONIC MYELOID LEUKAEMIA
     Dosage: 800 MG,
     Route: 048
     Dates: start: 20090619, end: 20090723
  3. TASIGNA [Suspect]
     Dosage: 600 MG,
     Route: 048
     Dates: start: 20090813, end: 20090816
  4. TASIGNA [Suspect]
     Dosage: 800 MG,
     Route: 048
     Dates: start: 20090817, end: 20090820
  5. TASIGNA [Suspect]
     Dosage: 200 MG,
     Route: 048
     Dates: start: 20090806, end: 20090809
  6. PREDNISOLONE [Concomitant]
     Dosage: 20 MG, UNK
     Route: 048
     Dates: end: 20090717
  7. PREDNISOLONE [Concomitant]
     Dosage: 30 MG, UNK
     Route: 048
     Dates: start: 20090723
  8. TASIGNA [Suspect]
     Dosage: 600 MG,
     Route: 048
     Dates: start: 20090821

REACTIONS (3)
  - PLATELET COUNT INCREASED [None]
  - HYPERBILIRUBINAEMIA [None]
  - ERYTHEMA MULTIFORME [None]
